FAERS Safety Report 6041152-X (Version None)
Quarter: 2009Q1

REPORT INFORMATION
  Report Type: 
  Country: None (occurrence: None)
  Receive Date: 20090116
  Receipt Date: 20080926
  Transmission Date: 20090719
  Serious: Yes (Hospitalization)
  Sender: FDA-Public Use
  Company Number: US-BRISTOL-MYERS SQUIBB COMPANY-14326581

PATIENT
  Age: 78 Year
  Sex: Female

DRUGS (2)
  1. ABILIFY [Suspect]
     Indication: DEPRESSION
     Dosage: INITIALLY WITH 2 MG
     Route: 048
     Dates: start: 20080515
  2. REMERON [Suspect]

REACTIONS (1)
  - PARKINSONISM [None]
